FAERS Safety Report 9711747 (Version 1)
Quarter: 2013Q4

REPORT INFORMATION
  Report Type: Spontaneous
  Country: US (occurrence: US)
  Receive Date: 20131126
  Receipt Date: 20131126
  Transmission Date: 20140711
  Serious: No
  Sender: FDA-Public Use
  Company Number: US-BRISTOL-MYERS SQUIBB COMPANY-18799700

PATIENT
  Age: 57 Year
  Sex: Male

DRUGS (5)
  1. BYDUREON [Suspect]
     Indication: DIABETES MELLITUS
     Dates: start: 20130226
  2. PROTONIX [Concomitant]
  3. LISINOPRIL [Concomitant]
  4. FUROSEMIDE [Concomitant]
  5. LANTUS [Concomitant]

REACTIONS (3)
  - Abdominal pain [Unknown]
  - Diarrhoea [Unknown]
  - Nausea [Unknown]
